FAERS Safety Report 4849183-X (Version None)
Quarter: 2005Q4

REPORT INFORMATION
  Report Type: 
  Country: None (occurrence: None)
  Receive Date: 20051209
  Receipt Date: 20051205
  Transmission Date: 20060501
  Serious: Yes (Death, Life-Threatening)
  Sender: FDA-Public Use
  Company Number: FR-MERCK-0512FRA00020

PATIENT
  Age: 47 Year
  Sex: Male
  Weight: 63 kg

DRUGS (11)
  1. INVANZ [Suspect]
     Indication: SEPSIS
     Route: 042
     Dates: start: 20050918, end: 20050921
  2. HEPARIN CALCIUM [Concomitant]
     Indication: THROMBOSIS PROPHYLAXIS
     Route: 058
     Dates: start: 20050912
  3. OFLOXACIN [Concomitant]
     Indication: SEPSIS
     Route: 042
     Dates: start: 20050916
  4. PANTOPRAZOLE SODIUM [Concomitant]
     Route: 042
     Dates: start: 20050912
  5. CILASTATIN SODIUM AND IMIPENEM [Concomitant]
     Indication: SEPSIS
     Route: 042
     Dates: start: 20050901, end: 20050918
  6. INSULIN [Concomitant]
     Indication: NEONATAL DIABETES MELLITUS
     Route: 058
  7. RAMIPRIL [Concomitant]
     Indication: HYPERTENSION
     Route: 048
  8. METOPROLOL [Concomitant]
     Indication: HYPERTENSION
     Route: 048
  9. NICARDIPINE HYDROCHLORIDE [Concomitant]
     Indication: HYPERTENSION
     Route: 048
  10. CALCIUM CARBONATE [Concomitant]
     Route: 048
  11. DARBEPOETIN ALFA [Concomitant]
     Indication: NORMOCHROMIC NORMOCYTIC ANAEMIA
     Route: 051

REACTIONS (4)
  - BRAIN STEM ISCHAEMIA [None]
  - CARDIO-RESPIRATORY ARREST [None]
  - COMA [None]
  - CONVULSION [None]
